FAERS Safety Report 18610849 (Version 1)
Quarter: 2020Q4

REPORT INFORMATION
  Report Type: Spontaneous
  Country: US (occurrence: US)
  Receive Date: 20201214
  Receipt Date: 20201214
  Transmission Date: 20210114
  Serious: Yes (Other)
  Sender: FDA-Public Use
  Company Number: US-STRIDES ARCOLAB LIMITED-2020SP015272

PATIENT
  Age: 9 Month
  Sex: Female

DRUGS (12)
  1. FENTANYL. [Concomitant]
     Active Substance: FENTANYL
     Dosage: 3 MICROGRAM/KILOGRAM PER DOSE
     Route: 042
  2. MIDAZOLAM. [Concomitant]
     Active Substance: MIDAZOLAM
     Indication: PRODUCT USED FOR UNKNOWN INDICATION
     Dosage: UNK
     Route: 040
  3. DEXMEDETOMIDINE. [Interacting]
     Active Substance: DEXMEDETOMIDINE
     Dosage: UNK, CONTINUOUS IV INFUSION AT A RATE OF 1 MCG/KG/HR
     Route: 042
  4. DEXMEDETOMIDINE. [Interacting]
     Active Substance: DEXMEDETOMIDINE
     Dosage: 0.08 MICROGRAM/KILOGRAM,BOLUS
     Route: 042
  5. FENTANYL. [Concomitant]
     Active Substance: FENTANYL
     Dosage: 2 MICROGRAM/KILOGRAM PER HOUR WHICH WAS UP-TITRATED TO A MAXIMUM OF 3 MICROGRAM/KILOGRAM PER HOUR
     Route: 042
  6. CISATRACURIUM. [Concomitant]
     Active Substance: CISATRACURIUM
     Dosage: UNK
     Route: 065
  7. DEXMEDETOMIDINE. [Interacting]
     Active Substance: DEXMEDETOMIDINE
     Indication: SEDATION
     Dosage: UNK
     Route: 042
  8. NOREPINEPHRINE. [Concomitant]
     Active Substance: NOREPINEPHRINE
     Indication: HYPOTENSION
     Dosage: UNK
     Route: 065
  9. TACROLIMUS. [Suspect]
     Active Substance: TACROLIMUS
     Indication: LIVER TRANSPLANT
     Dosage: UNK
     Route: 065
  10. EPINEPHRINE. [Concomitant]
     Active Substance: EPINEPHRINE
     Indication: HYPOTENSION
     Dosage: UNK
     Route: 065
  11. FENTANYL. [Concomitant]
     Active Substance: FENTANYL
     Indication: SEDATIVE THERAPY
     Dosage: 1 MICROGRAM/KILOGRAM PER HOUR
     Route: 042
  12. CISATRACURIUM. [Concomitant]
     Active Substance: CISATRACURIUM
     Indication: PRODUCT USED FOR UNKNOWN INDICATION
     Dosage: UNK
     Route: 065

REACTIONS (1)
  - Drug interaction [Unknown]
